FAERS Safety Report 4638955-2 (Version None)
Quarter: 2005Q2

REPORT INFORMATION
  Report Type: 
  Country: None (occurrence: None)
  Receive Date: 20050419
  Receipt Date: 20050414
  Transmission Date: 20051028
  Serious: Yes (Hospitalization)
  Sender: FDA-Public Use
  Company Number: FR-GLAXOSMITHKLINE-B0377858A

PATIENT
  Age: 17 Month
  Sex: Female
  Weight: 10.9 kg

DRUGS (3)
  1. AUGMENTIN '125' [Suspect]
     Indication: OTORRHOEA
     Route: 048
     Dates: start: 20050320, end: 20050323
  2. OFLOCET [Suspect]
     Indication: OTORRHOEA
     Route: 065
     Dates: start: 20050320
  3. ADIARIL [Concomitant]
     Indication: GASTROINTESTINAL DISORDER
     Route: 048
     Dates: start: 20050301

REACTIONS (5)
  - ASTHENIA [None]
  - FLATULENCE [None]
  - MUCOSAL DRYNESS [None]
  - RASH [None]
  - WEIGHT DECREASED [None]
